FAERS Safety Report 4763632-7 (Version None)
Quarter: 2005Q3

REPORT INFORMATION
  Report Type: 
  Country: None (occurrence: None)
  Receive Date: 20050901
  Receipt Date: 20050517
  Transmission Date: 20060218
  Serious: Yes (Hospitalization)
  Sender: FDA-Public Use
  Company Number: EGEL00205001664

PATIENT
  Sex: Female

DRUGS (1)
  1. ESTROGEL [Suspect]
     Indication: ILL-DEFINED DISORDER
     Dosage: DAILY TRANSCUTANEOUS
     Route: 003
     Dates: end: 20050101

REACTIONS (2)
  - DIARRHOEA [None]
  - STOMACH DISCOMFORT [None]
